FAERS Safety Report 6793514-0 (Version None)
Quarter: 2010Q2

REPORT INFORMATION
  Report Type: 
  Country: None (occurrence: None)
  Receive Date: 20100624
  Receipt Date: 20100427
  Transmission Date: 20101027
  Serious: Yes (Death)
  Sender: FDA-Public Use
  Company Number: US-MYLANLABS-2010S1007275

PATIENT
  Age: 84 Year
  Sex: Male

DRUGS (6)
  1. CLOZAPINE [Suspect]
     Indication: PSYCHOTIC DISORDER
     Route: 048
     Dates: start: 20000915, end: 20100420
  2. MORPHINE [Concomitant]
  3. ATROPINE [Concomitant]
  4. LORAZEPAM [Concomitant]
  5. PHENYTOIN [Concomitant]
  6. SEROQUEL [Concomitant]

REACTIONS (1)
  - DEMENTIA [None]
